FAERS Safety Report 6381572-7 (Version None)
Quarter: 2009Q3

REPORT INFORMATION
  Report Type: 
  Country: None (occurrence: None)
  Receive Date: 20090925
  Receipt Date: 20090923
  Transmission Date: 20100115
  Serious: Yes (Life-Threatening, Hospitalization)
  Sender: FDA-Public Use
  Company Number: SPV1-2009-00497

PATIENT
  Age: 70 Year
  Sex: Male
  Weight: 98 kg

DRUGS (11)
  1. FOSRENOL [Suspect]
     Indication: HYPERPHOSPHATAEMIA
     Dosage: ORAL
     Route: 048
     Dates: start: 20080110, end: 20090321
  2. ACETYLSALICYLIC ACID SRT [Concomitant]
  3. CETIRIZIN (CETIRIZINE HYDROCHLORIDE) [Concomitant]
  4. BISOPROLOL FUMARATE [Concomitant]
  5. VITARENAL (ASCORBIC ACID, BIOTIN, CALCIUM PANTOTHENATE, FOLIC ACID, NI [Concomitant]
  6. VITA (HYDROCHLORIDE, RIBOFLAVIN, THIAMINE HYDROCHLORIDE) [Concomitant]
  7. CALCIUM ACETATE (CALCIUM ACETATE) [Concomitant]
  8. AMIODARONE HCL [Concomitant]
  9. PIPERACILLIN [Concomitant]
  10. COMBACTAM (SULBACTAM SODIUM) [Concomitant]
  11. VANCOMYCIN [Concomitant]

REACTIONS (8)
  - DRUG ADMINISTRATION ERROR [None]
  - ILEAL PERFORATION [None]
  - ILEUS [None]
  - NAUSEA [None]
  - PNEUMONIA [None]
  - VOMITING [None]
  - WRONG TECHNIQUE IN DRUG USAGE PROCESS [None]
  - X-RAY ABNORMAL [None]
